FAERS Safety Report 17184706 (Version 1)
Quarter: 2019Q4

REPORT INFORMATION
  Report Type: Spontaneous
  Country: SE (occurrence: SE)
  Receive Date: 20191220
  Receipt Date: 20191220
  Transmission Date: 20200122
  Serious: Yes (Hospitalization)
  Sender: FDA-Public Use
  Company Number: SE-MYLANLABS-2019M1125478

PATIENT
  Age: 29 Year
  Sex: Male

DRUGS (1)
  1. LERGIGAN 25 MG FILMDRAGERADE TABLETTER [Suspect]
     Active Substance: PROMETHAZINE HYDROCHLORIDE
     Indication: PRODUCT USED FOR UNKNOWN INDICATION
     Dosage: 375 MILLIGRAM, TOTAL
     Route: 048
     Dates: start: 20190413

REACTIONS (3)
  - Body temperature increased [Unknown]
  - Intentional overdose [Unknown]
  - Myalgia [Unknown]

NARRATIVE: CASE EVENT DATE: 20190413
